FAERS Safety Report 18766049 (Version 2)
Quarter: 2021Q1

REPORT INFORMATION
  Report Type: Spontaneous
  Country: FR (occurrence: FR)
  Receive Date: 20210121
  Receipt Date: 20210223
  Transmission Date: 20210419
  Serious: Yes (Hospitalization, Other)
  Sender: FDA-Public Use
  Company Number: FR-AMGEN-FRASP2021007405

PATIENT
  Age: 37 Year
  Sex: Female

DRUGS (10)
  1. ZOPHREN [ONDANSETRON] [Concomitant]
     Active Substance: ONDANSETRON
     Indication: VOMITING
     Dosage: UNK
     Dates: start: 20200607, end: 20201030
  2. EMEND [Concomitant]
     Active Substance: APREPITANT
     Indication: VOMITING
     Dosage: UNK
     Dates: start: 20200607, end: 20201020
  3. PEMETREXED. [Concomitant]
     Active Substance: PEMETREXED
     Indication: NON-SMALL CELL LUNG CANCER
     Dosage: 720 MILLIGRAM
     Route: 042
     Dates: start: 20200608, end: 2020
  4. PEMETREXED. [Concomitant]
     Active Substance: PEMETREXED
     Dosage: 700 MILLIGRAM
     Route: 042
     Dates: start: 2020, end: 20201020
  5. DOLIPRANE CODEINE [Concomitant]
     Active Substance: ACETAMINOPHEN\CODEINE PHOSPHATE
     Indication: HEADACHE
     Dosage: 1 GRAM, QD
     Route: 048
     Dates: start: 2020
  6. CISPLATIN. [Concomitant]
     Active Substance: CISPLATIN
     Dosage: 105 MILLIGRAM, 4 CYCLES
     Route: 042
     Dates: start: 2020, end: 20200818
  7. ATEZOLIZUMAB. [Suspect]
     Active Substance: ATEZOLIZUMAB
     Indication: NON-SMALL CELL LUNG CANCER
     Dosage: 1200 MILLIGRAM
     Route: 042
     Dates: start: 20200608
  8. PRIMPERAN [Concomitant]
     Active Substance: METOCLOPRAMIDE HYDROCHLORIDE
     Indication: VOMITING
     Dosage: UNK
     Dates: start: 20200607, end: 20201030
  9. CISPLATIN. [Concomitant]
     Active Substance: CISPLATIN
     Indication: NON-SMALL CELL LUNG CANCER
     Dosage: 108 MILLIGRAM,4 CYCLES
     Route: 042
     Dates: start: 20200608, end: 2020
  10. BEVACIZUMAB. [Suspect]
     Active Substance: BEVACIZUMAB
     Indication: NON-SMALL CELL LUNG CANCER
     Dosage: 675 MILLIGRAM
     Route: 042
     Dates: start: 20200608

REACTIONS (4)
  - Alanine aminotransferase increased [Recovering/Resolving]
  - Metastases to meninges [Not Recovered/Not Resolved]
  - Hyperthyroidism [Recovering/Resolving]
  - Aspartate aminotransferase increased [Recovering/Resolving]

NARRATIVE: CASE EVENT DATE: 20201201
